FAERS Safety Report 25427950 (Version 1)
Quarter: 2025Q2

REPORT INFORMATION
  Report Type: Spontaneous
  Country: JP (occurrence: JP)
  Receive Date: 20250612
  Receipt Date: 20250612
  Transmission Date: 20250716
  Serious: Yes (Hospitalization)
  Sender: PFIZER
  Company Number: JP-PFIZER INC-PV202500069245

PATIENT
  Age: 72 Year
  Sex: Female
  Weight: 54.5 kg

DRUGS (6)
  1. OXALIPLATIN [Suspect]
     Active Substance: OXALIPLATIN
     Indication: Gastric cancer
     Dosage: 190 MG, 1X/DAY
     Route: 042
     Dates: start: 20240619, end: 20240925
  2. ZOLBETUXIMAB [Suspect]
     Active Substance: ZOLBETUXIMAB
     Indication: Gastric cancer
     Dosage: 910 MG, 1X/DAY
     Route: 042
     Dates: start: 20240619
  3. CAPECITABINE [Suspect]
     Active Substance: CAPECITABINE
     Indication: Gastric cancer
     Dosage: 1500 MG, 2X/DAY
     Route: 048
     Dates: start: 20240619
  4. ASPIRIN\LANSOPRAZOLE [Concomitant]
     Active Substance: ASPIRIN\LANSOPRAZOLE
     Route: 048
  5. AMLODIPINE BESYLATE [Concomitant]
     Active Substance: AMLODIPINE BESYLATE
     Route: 048
  6. MAGNESIUM OXIDE [Concomitant]
     Active Substance: MAGNESIUM OXIDE
     Route: 048

REACTIONS (2)
  - Pulmonary embolism [Recovering/Resolving]
  - Lacunar infarction [Recovering/Resolving]

NARRATIVE: CASE EVENT DATE: 20240808
